FAERS Safety Report 4337315-1 (Version None)
Quarter: 2004Q2

REPORT INFORMATION
  Report Type: 
  Country: None (occurrence: None)
  Receive Date: 20040412
  Receipt Date: 20040412
  Transmission Date: 20050107
  Serious: Yes (Hospitalization)
  Sender: FDA-Public Use
  Company Number: None

PATIENT
  Age: 20 Year
  Sex: Female

DRUGS (1)
  1. FLECAINIDE ACETATE [Suspect]
     Indication: ARRHYTHMIA
     Dosage: (50 MG, 2 IN 1 DAY (S)), ORAL
     Route: 048
     Dates: start: 20040325, end: 20040328

REACTIONS (3)
  - DRUG LEVEL ABOVE THERAPEUTIC [None]
  - ELECTROCARDIOGRAM QRS COMPLEX PROLONGED [None]
  - VENTRICULAR TACHYCARDIA [None]
